FAERS Safety Report 6236379-8 (Version None)
Quarter: 2009Q2

REPORT INFORMATION
  Report Type: 
  Country: None (occurrence: None)
  Receive Date: 20090619
  Receipt Date: 20090617
  Transmission Date: 20091009
  Serious: Yes (Hospitalization)
  Sender: FDA-Public Use
  Company Number: FR-WYE-G03864809

PATIENT
  Sex: Male

DRUGS (4)
  1. TAZOCILLINE [Suspect]
     Indication: PNEUMONIA
     Dosage: UNKNOWN
     Route: 042
     Dates: start: 20090313, end: 20090319
  2. TAZOCILLINE [Suspect]
     Indication: HYPOXIA
  3. TAVANIC [Suspect]
     Indication: PNEUMONIA
     Route: 048
     Dates: start: 20090319, end: 20090322
  4. TAVANIC [Suspect]
     Indication: HYPOXIA

REACTIONS (1)
  - CYTOLYTIC HEPATITIS [None]
